FAERS Safety Report 22299993 (Version 2)
Quarter: 2023Q2

REPORT INFORMATION
  Report Type: Spontaneous
  Country: US (occurrence: US)
  Receive Date: 20230509
  Receipt Date: 20230512
  Transmission Date: 20230721
  Serious: No
  Sender: FDA-Public Use
  Company Number: US-PFIZER INC-PV202300081526

PATIENT
  Age: 80 Year
  Sex: Female

DRUGS (2)
  1. DIFLUCAN [Interacting]
     Active Substance: FLUCONAZOLE
     Dosage: UNK
  2. XELJANZ XR [Interacting]
     Active Substance: TOFACITINIB CITRATE
     Dosage: UNK

REACTIONS (1)
  - Drug interaction [Unknown]
